FAERS Safety Report 5390337-4 (Version None)
Quarter: 2007Q3

REPORT INFORMATION
  Report Type: 
  Country: None (occurrence: None)
  Receive Date: 20070718
  Receipt Date: 20070712
  Transmission Date: 20080115
  Serious: Yes (Hospitalization)
  Sender: FDA-Public Use
  Company Number: US-JNJFOC-20070602833

PATIENT
  Sex: Female
  Weight: 108.86 kg

DRUGS (7)
  1. DOXORUBICIN HCL [Suspect]
     Indication: BREAST CANCER METASTATIC
     Route: 042
  2. NAVELBINE [Suspect]
     Indication: BREAST CANCER METASTATIC
     Route: 042
  3. GLIPIZIDE [Concomitant]
     Route: 065
  4. MOTRIN [Concomitant]
     Route: 065
  5. PEROCET [Concomitant]
     Dosage: AS NECESSARY
     Route: 065
  6. DURAGESIC-100 [Concomitant]
     Route: 062
  7. NEULASTA [Concomitant]
     Route: 065

REACTIONS (12)
  - ABDOMINAL PAIN [None]
  - CHEST PAIN [None]
  - DIABETES MELLITUS [None]
  - DYSPNOEA [None]
  - DYSTONIA [None]
  - FATIGUE [None]
  - NAUSEA [None]
  - OEDEMA [None]
  - PAIN [None]
  - PAIN IN EXTREMITY [None]
  - PULMONARY OEDEMA [None]
  - VOMITING [None]
